FAERS Safety Report 4995362-0 (Version None)
Quarter: 2006Q2

REPORT INFORMATION
  Report Type: 
  Country: None (occurrence: None)
  Receive Date: 20060508
  Receipt Date: 20040601
  Transmission Date: 20061013
  Serious: Yes (Other)
  Sender: FDA-Public Use
  Company Number: DE-BRISTOL-MYERS SQUIBB COMPANY-13340708

PATIENT
  Age: 50 Year
  Sex: Male
  Weight: 58 kg

DRUGS (11)
  1. ZERIT [Suspect]
     Indication: HIV INFECTION
     Dates: start: 19971101, end: 19991101
  2. SUSTIVA [Suspect]
     Indication: HIV INFECTION
     Dates: start: 19991101, end: 20030101
  3. REYATAZ [Suspect]
     Indication: HIV INFECTION
     Dosage: MAY-2003 400 MG/D, MAY-2003 REDUCED TO 300 MG/D, MAY-2004 INCREASED TO 400 MG DAILY.
     Dates: start: 20030301
  4. NORVIR [Concomitant]
     Indication: HIV INFECTION
     Dosage: STOPPED NOV-2001, RESTARTED JAN-2003 2X100MG/D, MAY-2003, REDUCED TO 100MG/D.
     Dates: start: 19971101
  5. ZIDOVUDINE [Concomitant]
     Indication: HIV INFECTION
     Dates: start: 19940101, end: 19971001
  6. ZALCITABINE [Concomitant]
     Indication: HIV INFECTION
     Dates: start: 19940101, end: 19961001
  7. LAMIVUDINE [Concomitant]
     Indication: HIV INFECTION
     Dosage: STOPPED OCT-1997, RESTARTED NOV-1997, STOPPED NOV-1999, RESTARTED 2001, STOPPED JAN-2003.
     Dates: start: 19961001, end: 20030101
  8. FORTOVASE [Concomitant]
     Indication: HIV INFECTION
     Dosage: STOPPED OCT-1997, RESTARTED NOV-1997, STOPPED 2001, RESTARTED MAR-2003 AT 1200 MG/D.
     Dates: start: 19961001
  9. INDINIVIR SULFATE [Concomitant]
     Indication: HIV INFECTION
     Dates: start: 20030101, end: 20030301
  10. TENOFOVIR [Concomitant]
     Indication: HIV INFECTION
     Dates: start: 20030301, end: 20030501
  11. OMEPRAZOLE [Concomitant]
     Indication: DYSPEPSIA
     Dates: start: 20040101

REACTIONS (11)
  - ANOREXIA [None]
  - ASTHENIA [None]
  - COLITIS [None]
  - DIARRHOEA [None]
  - DRUG RESISTANCE [None]
  - DYSPEPSIA [None]
  - HEPATOMEGALY [None]
  - HIATUS HERNIA [None]
  - LYMPHOPENIA [None]
  - NAUSEA [None]
  - WEIGHT DECREASED [None]
